FAERS Safety Report 6179707-4 (Version None)
Quarter: 2009Q2

REPORT INFORMATION
  Report Type: 
  Country: None (occurrence: None)
  Receive Date: 20090501
  Receipt Date: 20090501
  Transmission Date: 20091009
  Serious: Yes (Life-Threatening, Other)
  Sender: FDA-Public Use
  Company Number: None

PATIENT
  Age: 49 Year
  Sex: Female
  Weight: 43.0917 kg

DRUGS (2)
  1. XYREM [Suspect]
     Indication: NARCOLEPSY
     Dosage: 2.25 TWICE NIGHTLY PO
     Route: 048
     Dates: start: 20060301, end: 20060630
  2. XYREM [Suspect]
     Indication: NARCOLEPSY
     Dosage: 2.25 TWICE NIGHTLY PO
     Route: 048
     Dates: start: 20061001, end: 20061031

REACTIONS (18)
  - ACUTE PSYCHOSIS [None]
  - ANXIETY [None]
  - CHEST PAIN [None]
  - DELUSION [None]
  - DRUG DEPENDENCE [None]
  - DRUG LEVEL INCREASED [None]
  - DRUG WITHDRAWAL SYNDROME [None]
  - FEAR [None]
  - HEART RATE IRREGULAR [None]
  - IMPAIRED WORK ABILITY [None]
  - IRRITABILITY [None]
  - MALAISE [None]
  - MENOPAUSE [None]
  - MENTAL DISORDER [None]
  - PARANOIA [None]
  - PERSONALITY CHANGE [None]
  - PSYCHOTIC DISORDER [None]
  - UNDERWEIGHT [None]
